FAERS Safety Report 4732705-7 (Version None)
Quarter: 2005Q3

REPORT INFORMATION
  Report Type: 
  Country: None (occurrence: None)
  Receive Date: 20050801
  Receipt Date: 20050719
  Transmission Date: 20060218
  Serious: Yes (Hospitalization)
  Sender: FDA-Public Use
  Company Number: 200512196GDS

PATIENT
  Age: 65 Year
  Sex: Male

DRUGS (2)
  1. AVELOX [Suspect]
     Indication: DIARRHOEA
     Dosage: 400 MG, QD, INTRAVENOUS
     Route: 042
     Dates: start: 20050717, end: 20050718
  2. AVELOX [Suspect]
     Indication: PYREXIA
     Dosage: 400 MG, QD, INTRAVENOUS
     Route: 042
     Dates: start: 20050717, end: 20050718

REACTIONS (1)
  - MYOCLONUS [None]
